FAERS Safety Report 7555058-8 (Version None)
Quarter: 2011Q2

REPORT INFORMATION
  Report Type: 
  Country: None (occurrence: None)
  Receive Date: 20110610
  Receipt Date: 20110531
  Transmission Date: 20111010
  Serious: Yes (Other)
  Sender: FDA-Public Use
  Company Number: 1000021495

PATIENT
  Age: 77 Year
  Sex: Male
  Weight: 65 kg

DRUGS (3)
  1. PRISTIQ [Suspect]
     Indication: MAJOR DEPRESSION
     Dates: start: 20100201
  2. LEXAPRO [Suspect]
     Indication: MAJOR DEPRESSION
  3. CARTIA (DILTIAZEM HYDROCHLORIDE) (TABLETS) (DILTIAZEM HYDROCHLORIDE) [Concomitant]

REACTIONS (4)
  - BLOOD UREA INCREASED [None]
  - DRUG INEFFECTIVE [None]
  - GLOMERULAR FILTRATION RATE DECREASED [None]
  - BLOOD CREATININE INCREASED [None]
